FAERS Safety Report 14777878 (Version 1)
Quarter: 2018Q2

REPORT INFORMATION
  Report Type: Spontaneous
  Country: ES (occurrence: ES)
  Receive Date: 20180419
  Receipt Date: 20180419
  Transmission Date: 20180711
  Serious: Yes (Death)
  Sender: FDA-Public Use
  Company Number: ES-CIPLA LTD.-2017ES16456

PATIENT

DRUGS (3)
  1. MANNITOL. [Concomitant]
     Active Substance: MANNITOL
     Dosage: 0.25 G/K, ALONG WITH CISPLATIN
     Route: 065
  2. IRINOTECAN [Suspect]
     Active Substance: IRINOTECAN
     Indication: GLIOMA
     Dosage: 50-65 MG/M2, FOR 4 WEEKS
  3. CISPLATIN. [Suspect]
     Active Substance: CISPLATIN
     Indication: GLIOMA
     Dosage: 30 MG/M2, WEEKLY

REACTIONS (2)
  - Disease progression [Fatal]
  - Adverse event [Unknown]
